FAERS Safety Report 20164738 (Version 1)
Quarter: 2021Q4

REPORT INFORMATION
  Report Type: Spontaneous
  Country: US (occurrence: None)
  Receive Date: 20211208
  Receipt Date: 20211208
  Transmission Date: 20220303
  Serious: Yes (Hospitalization)
  Sender: FDA-Public Use
  Company Number: None

PATIENT
  Age: 67 Year
  Sex: Male

DRUGS (1)
  1. SEMAGLUTIDE [Suspect]
     Active Substance: SEMAGLUTIDE
     Indication: Diabetes mellitus
     Dosage: OTHER STRENGTH : 0.5MG/0.375MG, 1.5;?FREQUENCY : WEEKLY;?
     Route: 058
     Dates: start: 20210819, end: 20211006

REACTIONS (2)
  - Bile duct stone [None]
  - Cholangitis [None]

NARRATIVE: CASE EVENT DATE: 20211122
